FAERS Safety Report 8624108-X (Version None)
Quarter: 2012Q3

REPORT INFORMATION
  Report Type: 
  Country: None (occurrence: None)
  Receive Date: 20120824
  Receipt Date: 20120824
  Transmission Date: 20120928
  Serious: No
  Sender: FDA-Public Use
  Company Number: None

PATIENT
  Sex: Female

DRUGS (1)
  1. ENBREL [Suspect]
     Indication: RHEUMATOID ARTHRITIS
     Dosage: 50MG QWEEK SQ
     Route: 058
     Dates: start: 20120501, end: 20120822

REACTIONS (4)
  - ORAL PAIN [None]
  - DRY MOUTH [None]
  - SWOLLEN TONGUE [None]
  - OEDEMA MOUTH [None]
